FAERS Safety Report 8896486 (Version 1)
Quarter: 2012Q4

REPORT INFORMATION
  Report Type: Spontaneous
  Country: JP (occurrence: None)
  Receive Date: 20121102
  Receipt Date: 20121102
  Transmission Date: 20130627
  Serious: Yes (Other)
  Sender: FDA-Public Use
  Company Number: FK201203216

PATIENT
  Sex: Female

DRUGS (6)
  1. DEXAMETHASONE INJECTION (MANUFACTURER UNKNOWN)(DEXAMETHASONE SODIUM PHOSPHATE)(DEXAMETHASONE SODIUM^PHOSPHATE) [Suspect]
     Dosage: 20 mg, day 1-4, 9-12 and 17-20, Oral
  2. DEXAMETHASONE INJECTION (MANUFACTURER UNKNOWN)(DEXAMETHASONE SODIUM PHOSPHATE)(DEXAMETHASONE SODIUM^PHOSPHATE) [Suspect]
     Dosage: 12 mg, days 1,2,8,9 and 15 and 16, Oral
  3. LENALIDOMIDE [Suspect]
     Dosage: 5 mg, day 1-21 of  28d cycle
  4. LENALIDOMIDE [Suspect]
     Dosage: 10 mg, INCREASED AT 3RD CYCLE OF THERAPY, Oral
  5. BORTEZOMIB [Concomitant]
  6. ZOLEDRONIC ACID (ZOLEDRONIC ACID) [Concomitant]

REACTIONS (4)
  - Tetany [None]
  - Osteopenia [None]
  - Osteosclerosis [None]
  - Pancytopenia [None]
